FAERS Safety Report 9771011 (Version 1)
Quarter: 2013Q4

REPORT INFORMATION
  Report Type: Spontaneous
  Country: GB (occurrence: GB)
  Receive Date: 20131218
  Receipt Date: 20131218
  Transmission Date: 20140711
  Serious: Yes (Other)
  Sender: FDA-Public Use
  Company Number: GB-TEVA-450028ISR

PATIENT
  Age: 5 Year
  Sex: Female

DRUGS (3)
  1. LEVETIRACETAM [Suspect]
     Dosage: TOTAL DOSE:  620 (UNITS UNSPECIFIED)
  2. CLOBAZAM [Concomitant]
     Dosage: TOTAL DOSE:  10 (UNITS UNSPECIFIED)
  3. LAMOTRIGINE [Concomitant]
     Dosage: TOTAL DOSE: 100 (UNSPECIFIED UNITS)

REACTIONS (1)
  - Neurosurgery [Unknown]
